FAERS Safety Report 24895464 (Version 1)
Quarter: 2025Q1

REPORT INFORMATION
  Report Type: Spontaneous
  Country: CN (occurrence: CN)
  Receive Date: 20250128
  Receipt Date: 20250128
  Transmission Date: 20250409
  Serious: Yes (Hospitalization, Other)
  Sender: FRESENIUS KABI
  Company Number: CN-FreseniusKabi-FK202501269

PATIENT
  Age: 2 Month
  Sex: Male
  Weight: 2 kg

DRUGS (6)
  1. SMOFLIPID [Suspect]
     Active Substance: FISH OIL\MEDIUM-CHAIN TRIGLYCERIDES\OLIVE OIL\SOYBEAN OIL
     Indication: Nutritional supplementation
     Dosage: FOA - INJECTION
     Route: 041
     Dates: start: 20241116, end: 20250120
  2. PAEDIATRIC COMPOUND AMINO ACID INJECTION (19AA-I) [Concomitant]
     Indication: Nutritional supplementation
     Dates: start: 20241116
  3. DEXTROSE [Concomitant]
     Active Substance: DEXTROSE MONOHYDRATE
     Indication: Nutritional supplementation
  4. DEXTROSE [Concomitant]
     Active Substance: DEXTROSE MONOHYDRATE
     Dates: start: 20241116
  5. water soluble vitamin for injection [Concomitant]
     Indication: Nutritional supplementation
     Dates: start: 20241116
  6. fat soluble vitamin for injection [Concomitant]
     Indication: Nutritional supplementation
     Dates: start: 20241116

REACTIONS (1)
  - Low density lipoprotein increased [Unknown]

NARRATIVE: CASE EVENT DATE: 20250114
